FAERS Safety Report 25830916 (Version 1)
Quarter: 2025Q3

REPORT INFORMATION
  Report Type: Spontaneous
  Country: US (occurrence: US)
  Receive Date: 20250922
  Receipt Date: 20250922
  Transmission Date: 20251020
  Serious: No
  Sender: SUNOVION
  Company Number: US-SUMITOMO PHARMA SWITZERLAND GMBH-2025SPA011778

PATIENT
  Age: 68 Year
  Sex: Male

DRUGS (8)
  1. ORGOVYX [Suspect]
     Active Substance: RELUGOLIX
     Indication: Prostate cancer
     Route: 048
     Dates: start: 20250818, end: 20250818
  2. ORGOVYX [Suspect]
     Active Substance: RELUGOLIX
     Route: 048
  3. Amlodipine besylate;Benazepril [Concomitant]
  4. VITAMINS [Concomitant]
     Active Substance: VITAMINS
  5. CIPROFLOXACIN [Concomitant]
     Active Substance: CIPROFLOXACIN
  6. MAGNESIUM [Concomitant]
     Active Substance: MAGNESIUM
  7. LEVOTHYROXINE [Concomitant]
     Active Substance: LEVOTHYROXINE
  8. TACROLIMUS [Concomitant]
     Active Substance: TACROLIMUS

REACTIONS (2)
  - Fatigue [Unknown]
  - Hot flush [Unknown]
